FAERS Safety Report 9424294 (Version 3)
Quarter: 2014Q1

REPORT INFORMATION
  Report Type: Spontaneous
  Country: JP (occurrence: JP)
  Receive Date: 20130729
  Receipt Date: 20140106
  Transmission Date: 20141002
  Serious: Yes (Life-Threatening, Hospitalization, Disabling, Other)
  Sender: FDA-Public Use
  Company Number: JP-BAYER-2013-088960

PATIENT
  Age: 63 Year
  Sex: Male

DRUGS (14)
  1. NEXAVAR [Suspect]
     Indication: HEPATOCELLULAR CARCINOMA
     Dosage: DAILY DOSE 400 MG
     Route: 048
     Dates: start: 20130611, end: 20130625
  2. NEXAVAR [Suspect]
     Indication: HEPATOCELLULAR CARCINOMA
     Dosage: DAILY DOSE 600 MG
     Route: 048
     Dates: start: 20130626, end: 20130704
  3. NEXAVAR [Suspect]
     Indication: HEPATOCELLULAR CARCINOMA
     Dosage: 400 MG / DAY
     Route: 048
     Dates: start: 20130706, end: 20130706
  4. HYPEN [Concomitant]
     Dosage: DAILY DOSE 400 MG
     Route: 048
  5. URSO [Concomitant]
     Indication: HEPATIC CIRRHOSIS
     Dosage: DAILY DOSE 600 MG
     Route: 048
  6. ANTEBATE [Concomitant]
     Indication: PALMAR-PLANTAR ERYTHRODYSAESTHESIA SYNDROME
     Dosage: UNK
     Route: 061
     Dates: start: 20130613, end: 20130706
  7. HIRUDOID [Concomitant]
     Indication: PALMAR-PLANTAR ERYTHRODYSAESTHESIA SYNDROME
     Dosage: UNK
     Route: 061
     Dates: start: 20130613, end: 20130706
  8. JANUVIA [Concomitant]
     Indication: DIABETES MELLITUS
     Dosage: DAILY DOSE 50 MG
     Route: 048
  9. LASIX [Concomitant]
     Indication: HYPERTENSION
     Dosage: DAILY DOSE 20 MG
     Route: 048
  10. LASIX [Concomitant]
     Indication: ASCITES
  11. MIRIPLA [Concomitant]
     Dosage: DAILY DOSE 71.65 MG
     Route: 013
     Dates: start: 20130527, end: 20130527
  12. MERLACTONE KOBAYASHI KAO [Concomitant]
     Indication: HYPERTENSION
     Dosage: DAILY DOSE 25 MG
     Route: 048
  13. MERLACTONE KOBAYASHI KAO [Concomitant]
     Indication: ASCITES
  14. LACTULOSE [Concomitant]
     Dosage: DAILY DOSE 180 ML
     Route: 048

REACTIONS (6)
  - Cerebral infarction [Recovering/Resolving]
  - Interstitial lung disease [Not Recovered/Not Resolved]
  - Oesophageal varices haemorrhage [Recovered/Resolved]
  - Protein total increased [Recovered/Resolved]
  - White blood cell count increased [Recovered/Resolved]
  - Blood urea increased [Unknown]
